FAERS Safety Report 10065940 (Version 1)
Quarter: 2014Q2

REPORT INFORMATION
  Report Type: Spontaneous
  Country: US (occurrence: US)
  Receive Date: 20140408
  Receipt Date: 20140408
  Transmission Date: 20141212
  Serious: No
  Sender: FDA-Public Use
  Company Number: US-PFIZER INC-2014096997

PATIENT
  Age: 63 Year
  Sex: Male
  Weight: 68 kg

DRUGS (2)
  1. LYRICA [Suspect]
     Indication: NEUROPATHY PERIPHERAL
     Dosage: 50 MG, 3X/DAY
     Dates: start: 2013
  2. OXYCODONE [Concomitant]
     Indication: SPINAL PAIN
     Dosage: 30 MG, (4-5 TIMES A DAY )

REACTIONS (2)
  - Drug ineffective [Unknown]
  - Insomnia [Unknown]
